FAERS Safety Report 13047757 (Version 6)
Quarter: 2017Q2

REPORT INFORMATION
  Report Type: Report from Study
  Country: BR (occurrence: BR)
  Receive Date: 20161220
  Receipt Date: 20170623
  Transmission Date: 20170830
  Serious: Yes (Life-Threatening, Other)
  Sender: FDA-Public Use
  Company Number: BR-ALEXION PHARMACEUTICALS INC.-A201609964

PATIENT
  Age: 60 Year
  Sex: Male

DRUGS (2)
  1. SOLIRIS [Suspect]
     Active Substance: ECULIZUMAB
     Indication: PAROXYSMAL NOCTURNAL HAEMOGLOBINURIA
     Dosage: 600 MG, QW
     Route: 042
     Dates: start: 20160524, end: 20160614
  2. SOLIRIS [Suspect]
     Active Substance: ECULIZUMAB
     Dosage: 900 MG, Q2W
     Route: 042
     Dates: start: 20160621, end: 20161208

REACTIONS (18)
  - Haemoglobinuria [Recovering/Resolving]
  - Oropharyngeal pain [Unknown]
  - Bilirubin conjugated abnormal [Unknown]
  - Haematocrit decreased [Unknown]
  - Haemoglobin decreased [Unknown]
  - Chromaturia [Unknown]
  - Haemolysis [Unknown]
  - Drug dose omission [Unknown]
  - Blood bilirubin abnormal [Unknown]
  - Haptoglobin abnormal [Unknown]
  - Incorrect dose administered [Recovered/Resolved]
  - Decreased appetite [Unknown]
  - Haematuria [Unknown]
  - Fatigue [Unknown]
  - Blood bilirubin unconjugated [Unknown]
  - Blood lactate dehydrogenase abnormal [Unknown]
  - Viral upper respiratory tract infection [Recovering/Resolving]
  - Headache [Unknown]

NARRATIVE: CASE EVENT DATE: 20161206
